FAERS Safety Report 17875364 (Version 3)
Quarter: 2021Q1

REPORT INFORMATION
  Report Type: Spontaneous
  Country: US (occurrence: US)
  Receive Date: 20200609
  Receipt Date: 20210121
  Transmission Date: 20210419
  Serious: Yes (Hospitalization)
  Sender: FDA-Public Use
  Company Number: NVSC2020US157159

PATIENT
  Age: 9 Year
  Sex: Female
  Weight: 35.5 kg

DRUGS (3)
  1. MEKINIST [Suspect]
     Active Substance: TRAMETINIB DIMETHYL SULFOXIDE
     Indication: OPTIC NERVE NEOPLASM
     Dosage: 1 MG, QD
     Route: 048
     Dates: start: 20201101
  2. MEKINIST [Suspect]
     Active Substance: TRAMETINIB DIMETHYL SULFOXIDE
     Indication: NEUROFIBROMATOSIS
     Dosage: 0.5 MG, QD
     Route: 048
     Dates: start: 2019
  3. TAFINLAR [Suspect]
     Active Substance: DABRAFENIB MESYLATE
     Indication: OPTIC NERVE NEOPLASM
     Dosage: UNK (100MG IN THE MORNING AND 125 MG IN THE EVENING)
     Route: 048
     Dates: start: 20201030

REACTIONS (5)
  - Seizure [Recovered/Resolved]
  - Weight increased [Unknown]
  - Product use issue [Unknown]
  - Neoplasm progression [Unknown]
  - Product use in unapproved indication [Unknown]

NARRATIVE: CASE EVENT DATE: 20210105
